FAERS Safety Report 18049886 (Version 2)
Quarter: 2020Q3

REPORT INFORMATION
  Report Type: Spontaneous
  Country: KR (occurrence: KR)
  Receive Date: 20200721
  Receipt Date: 20200901
  Transmission Date: 20201103
  Serious: Yes (Other)
  Sender: FDA-Public Use
  Company Number: KR-009507513-2007KOR007363

PATIENT
  Age: 76 Year
  Sex: Female

DRUGS (6)
  1. SITAGLIPTIN PHOSPHATE [Suspect]
     Active Substance: SITAGLIPTIN PHOSPHATE
     Dosage: UNK
     Route: 048
  2. CEFTRIAXONE. [Concomitant]
     Active Substance: CEFTRIAXONE
     Dosage: UNK
     Route: 042
  3. ATORVASTATIN [Concomitant]
     Active Substance: ATORVASTATIN
     Dosage: UNK, FOR OVER 5 YEARS
  4. ASPIRIN. [Concomitant]
     Active Substance: ASPIRIN
     Dosage: UNK, FOR OVER 5 YEARS
  5. FIMASARTAN POTASSIUM [Concomitant]
     Dosage: UNK, FOR OVER 5 YEARS
  6. METFORMIN [Concomitant]
     Active Substance: METFORMIN HYDROCHLORIDE
     Dosage: UNK, FOR OVER 5 YEARS

REACTIONS (2)
  - Cholecystitis acute [Recovered/Resolved]
  - Drug reaction with eosinophilia and systemic symptoms [Recovered/Resolved]
